FAERS Safety Report 4983514-5 (Version None)
Quarter: 2006Q2

REPORT INFORMATION
  Report Type: 
  Country: None (occurrence: None)
  Receive Date: 20060426
  Receipt Date: 20050922
  Transmission Date: 20061013
  Serious: Yes (Hospitalization)
  Sender: FDA-Public Use
  Company Number: US-MERCK-0509USA03622

PATIENT
  Age: 52 Year
  Sex: Female
  Weight: 66 kg

DRUGS (12)
  1. VIOXX [Suspect]
     Indication: MONARTHRITIS
     Route: 048
     Dates: start: 20000518, end: 20010317
  2. VIOXX [Suspect]
     Route: 048
     Dates: start: 20000518, end: 20010317
  3. VIOXX [Suspect]
     Indication: OSTEOARTHRITIS
     Route: 048
     Dates: start: 20000518, end: 20010317
  4. VIOXX [Suspect]
     Route: 048
     Dates: start: 20000518, end: 20010317
  5. SINGULAIR [Concomitant]
     Indication: ASTHMA
     Route: 065
  6. SYNTHROID [Concomitant]
     Indication: THYROID DISORDER
     Route: 065
  7. ALBUTEROL [Concomitant]
     Indication: ASTHMA
     Route: 065
  8. COMBIVENT [Concomitant]
     Indication: ASTHMA
     Route: 065
  9. SEREVENT [Concomitant]
     Indication: ASTHMA
     Route: 055
  10. PRAVACHOL [Concomitant]
     Indication: BLOOD CHOLESTEROL INCREASED
     Route: 065
     Dates: start: 20000301, end: 20050401
  11. ZESTRIL [Concomitant]
     Indication: HYPERTENSION
     Route: 065
     Dates: start: 19960101, end: 20010101
  12. PAXIL [Concomitant]
     Indication: DEPRESSION
     Route: 065
     Dates: start: 19990101, end: 20050601

REACTIONS (10)
  - ATRIAL FIBRILLATION [None]
  - BUNDLE BRANCH BLOCK LEFT [None]
  - CARDIOMYOPATHY [None]
  - DYSPHONIA [None]
  - DYSPNOEA [None]
  - EXERCISE TOLERANCE DECREASED [None]
  - HYPERTRIGLYCERIDAEMIA [None]
  - MYOCARDIAL INFARCTION [None]
  - PANIC DISORDER [None]
  - RESPIRATORY FAILURE [None]
